FAERS Safety Report 9158513 (Version 1)
Quarter: 2013Q1

REPORT INFORMATION
  Report Type: Spontaneous
  Country: US (occurrence: US)
  Receive Date: 20130312
  Receipt Date: 20130312
  Transmission Date: 20140127
  Serious: Yes (Other)
  Sender: FDA-Public Use
  Company Number: US-AMGEN-USASP2013015458

PATIENT
  Age: 25 Year
  Sex: Female

DRUGS (4)
  1. NEULASTA [Suspect]
     Indication: PRODUCT USED FOR UNKNOWN INDICATION
     Dosage: UNK
  2. CISPLATIN [Concomitant]
     Indication: TERATOMA
     Dosage: UNK
  3. VP-16 [Concomitant]
     Indication: TERATOMA
     Dosage: UNK
  4. ALOXI [Concomitant]
     Dosage: UNK

REACTIONS (2)
  - Aphasia [Recovered/Resolved]
  - Headache [Recovered/Resolved]
